FAERS Safety Report 8461626-1 (Version None)
Quarter: 2012Q2

REPORT INFORMATION
  Report Type: 
  Country: None (occurrence: None)
  Receive Date: 20120625
  Receipt Date: 20120618
  Transmission Date: 20120825
  Serious: Yes (Other)
  Sender: FDA-Public Use
  Company Number: PHHY2012JP045501

PATIENT
  Age: 92 Year
  Sex: Female

DRUGS (4)
  1. EXELON [Suspect]
     Dosage: 9.5 MG DAILY
     Route: 062
     Dates: start: 20120601
  2. EXELON [Suspect]
     Dosage: 4.5MG DAILY
     Route: 062
     Dates: start: 20120531
  3. PHENYTOIN SODIUM CAP [Concomitant]
     Indication: EPILEPSY
     Route: 048
  4. EXELON [Suspect]
     Indication: DEMENTIA ALZHEIMER'S TYPE
     Dosage: 4.5MG DAILY
     Route: 062
     Dates: start: 20120522

REACTIONS (3)
  - WRONG TECHNIQUE IN DRUG USAGE PROCESS [None]
  - NYSTAGMUS [None]
  - FOOD AVERSION [None]
